FAERS Safety Report 5901529-7 (Version None)
Quarter: 2008Q3

REPORT INFORMATION
  Report Type: 
  Country: None (occurrence: None)
  Receive Date: 20080926
  Receipt Date: 20080926
  Transmission Date: 20090109
  Serious: Yes (Hospitalization)
  Sender: FDA-Public Use
  Company Number: None

PATIENT
  Age: 70 Year
  Sex: Female
  Weight: 84.2 kg

DRUGS (1)
  1. FEMHRT [Suspect]
     Indication: HORMONE REPLACEMENT THERAPY
     Dosage: 1 TABLET DAILY 21DAYS ORAL  LONG TIME
     Route: 048

REACTIONS (1)
  - PULMONARY EMBOLISM [None]
